FAERS Safety Report 16244818 (Version 1)
Quarter: 2019Q2

REPORT INFORMATION
  Report Type: Spontaneous
  Country: GR (occurrence: GR)
  Receive Date: 20190426
  Receipt Date: 20190426
  Transmission Date: 20190711
  Serious: Yes (Other)
  Sender: FDA-Public Use
  Company Number: GR-TEVA-2019-GR-1041638

PATIENT
  Age: 2 Day
  Sex: Male
  Weight: 2.1 kg

DRUGS (2)
  1. DORMICUM [Concomitant]
     Indication: SEDATION
     Route: 042
     Dates: start: 20131207
  2. FENTANYL. [Suspect]
     Active Substance: FENTANYL
     Indication: SEDATION
     Route: 042
     Dates: start: 20131207

REACTIONS (1)
  - Dyskinesia [Recovered/Resolved]
